FAERS Safety Report 7530205-2 (Version None)
Quarter: 2011Q2

REPORT INFORMATION
  Report Type: 
  Country: None (occurrence: None)
  Receive Date: 20110607
  Receipt Date: 20110524
  Transmission Date: 20111010
  Serious: Yes (Other)
  Sender: FDA-Public Use
  Company Number: B0707198A

PATIENT
  Age: 50 Year
  Sex: Female

DRUGS (2)
  1. ANTI-CHOLESTEROL MEDICATION [Concomitant]
  2. ALLI [Suspect]
     Dosage: 60MG PER DAY
     Route: 048

REACTIONS (3)
  - OFF LABEL USE [None]
  - BLOOD THYROID STIMULATING HORMONE INCREASED [None]
  - HYPOTHYROIDISM [None]
